FAERS Safety Report 4888804-2 (Version None)
Quarter: 2005Q4

REPORT INFORMATION
  Report Type: 
  Country: None (occurrence: None)
  Receive Date: 20051215
  Receipt Date: 20050208
  Transmission Date: 20060501
  Serious: Yes (Hospitalization, Other)
  Sender: FDA-Public Use
  Company Number: 2005027591

PATIENT
  Age: 67 Year
  Sex: Female
  Weight: 81.6475 kg

DRUGS (5)
  1. BEXTRA [Suspect]
     Indication: OSTEOARTHRITIS
     Dosage: 10 MG (10 MG,1 IN 1 D),ORAL
     Route: 048
     Dates: start: 20030101, end: 20041001
  2. QUINAPRIL HCL [Concomitant]
  3. VERAPAMIL HCL [Concomitant]
  4. GARLIC (GARLIC) [Concomitant]
  5. HYDROCHLOROTHIAZIDE [Concomitant]

REACTIONS (4)
  - ARRHYTHMIA [None]
  - DYSPEPSIA [None]
  - HEADACHE [None]
  - OESOPHAGEAL PAIN [None]
